FAERS Safety Report 4709892-X (Version None)
Quarter: 2005Q3

REPORT INFORMATION
  Report Type: 
  Country: None (occurrence: None)
  Receive Date: 20050708
  Receipt Date: 20050628
  Transmission Date: 20060218
  Serious: Yes (Other)
  Sender: FDA-Public Use
  Company Number: US-SANOFI-SYNTHELABO-A03200501965

PATIENT
  Sex: Female
  Weight: 113.38 kg

DRUGS (9)
  1. PLAVIX [Suspect]
     Indication: CORONARY ARTERY DISEASE
     Route: 048
     Dates: start: 20050301
  2. PLAVIX [Suspect]
     Indication: STENT PLACEMENT
     Route: 048
     Dates: start: 20050301
  3. LABETALOL HCL [Concomitant]
     Route: 048
  4. POTASSIUM CHLORIDE [Concomitant]
     Route: 048
  5. LASIX [Concomitant]
     Route: 048
  6. CARDIZEM [Concomitant]
     Route: 048
  7. NOVOLIN [Concomitant]
     Dosage: 70/30 TWICE A DAY
     Route: 058
  8. ASPIRIN [Concomitant]
     Route: 048
  9. TYLENOL W/ CODEINE NO. 3 [Concomitant]
     Dosage: 2 OR 3 TIMES/DAY
     Route: 048

REACTIONS (1)
  - VISUAL ACUITY REDUCED [None]
